FAERS Safety Report 22331802 (Version 3)
Quarter: 2023Q2

REPORT INFORMATION
  Report Type: Spontaneous
  Country: TZ (occurrence: TZ)
  Receive Date: 20230517
  Receipt Date: 20230613
  Transmission Date: 20230721
  Serious: Yes (Hospitalization, Congenital Anomaly, Other)
  Sender: FDA-Public Use
  Company Number: TZ-GSK-TZ2023GSK067749

PATIENT

DRUGS (3)
  1. DOLUTEGRAVIR [Suspect]
     Active Substance: DOLUTEGRAVIR
     Indication: HIV infection
     Dosage: UNK
     Route: 064
  2. LAMIVUDINE [Suspect]
     Active Substance: LAMIVUDINE
     Indication: HIV infection
     Dosage: UNK
     Route: 064
  3. TENOFOVIR DISOPROXIL FUMARATE [Suspect]
     Active Substance: TENOFOVIR DISOPROXIL FUMARATE
     Indication: HIV infection
     Dosage: UNK
     Route: 064

REACTIONS (15)
  - Congenital teratoma [Recovered/Resolved]
  - Cyst [Recovered/Resolved]
  - Ear swelling [Unknown]
  - Discharge [Recovered/Resolved]
  - Skin lesion [Recovered/Resolved]
  - Skin hyperpigmentation [Recovered/Resolved]
  - Neutrophilia [Recovered/Resolved]
  - Arnold-Chiari malformation [Recovered/Resolved]
  - Atrial septal defect [Recovered/Resolved]
  - Skin ulcer [Recovered/Resolved]
  - Bone erosion [Recovered/Resolved]
  - Lymphocytic infiltration [Recovered/Resolved]
  - Pyrexia [Recovered/Resolved]
  - Exposure via breast milk [Unknown]
  - Foetal exposure during pregnancy [Unknown]
